FAERS Safety Report 20480853 (Version 1)
Quarter: 2022Q1

REPORT INFORMATION
  Report Type: Spontaneous
  Country: US (occurrence: US)
  Receive Date: 20220216
  Receipt Date: 20220216
  Transmission Date: 20220423
  Serious: No
  Sender: FDA-Public Use
  Company Number: US-OTSUKA-2021_033925

PATIENT
  Age: 7 Year
  Sex: Female

DRUGS (9)
  1. BUSULFAN [Suspect]
     Active Substance: BUSULFAN
     Indication: Acute graft versus host disease
     Dosage: UNK
     Route: 065
  2. BUSULFAN [Suspect]
     Active Substance: BUSULFAN
     Indication: Bone marrow conditioning regimen
  3. FLUDARABINE [Concomitant]
     Active Substance: FLUDARABINE PHOSPHATE
     Indication: Bone marrow conditioning regimen
     Dosage: UNK
     Route: 065
  4. FLUDARABINE [Concomitant]
     Active Substance: FLUDARABINE PHOSPHATE
     Indication: Acute graft versus host disease in skin
  5. CYCLOSPORINE [Concomitant]
     Active Substance: CYCLOSPORINE
     Indication: Prophylaxis against graft versus host disease
     Dosage: UNK
     Route: 065
  6. CYCLOSPORINE [Concomitant]
     Active Substance: CYCLOSPORINE
     Indication: Acute graft versus host disease in skin
  7. METHOTREXATE [Concomitant]
     Active Substance: METHOTREXATE
     Indication: Prophylaxis against graft versus host disease
     Dosage: UNK
     Route: 065
  8. METHOTREXATE [Concomitant]
     Active Substance: METHOTREXATE
     Indication: Acute graft versus host disease in skin
  9. MYCOPHENOLATE MOFETIL [Concomitant]
     Active Substance: MYCOPHENOLATE MOFETIL
     Indication: Acute graft versus host disease in skin
     Dosage: UNK
     Route: 065

REACTIONS (1)
  - Product use in unapproved indication [Unknown]
